FAERS Safety Report 13657468 (Version 1)
Quarter: 2017Q2

REPORT INFORMATION
  Report Type: Spontaneous
  Country: US (occurrence: US)
  Receive Date: 20170615
  Receipt Date: 20170615
  Transmission Date: 20170830
  Serious: No
  Sender: FDA-Public Use
  Company Number: US-ELI_LILLY_AND_COMPANY-US201706006015

PATIENT
  Age: 0 Year
  Sex: Male

DRUGS (2)
  1. RELION HUMULIN N [Concomitant]
     Indication: PRODUCT USED FOR UNKNOWN INDICATION
  2. HUMALOG KWIKPEN [Suspect]
     Active Substance: INSULIN LISPRO
     Indication: GESTATIONAL DIABETES
     Dosage: 5 U, BID
     Route: 064
     Dates: start: 20161202

REACTIONS (4)
  - Acoustic stimulation tests abnormal [Unknown]
  - Foetal exposure during pregnancy [Unknown]
  - Jaundice neonatal [Unknown]
  - Exposure during breast feeding [Unknown]

NARRATIVE: CASE EVENT DATE: 20161202
